FAERS Safety Report 17721153 (Version 2)
Quarter: 2020Q2

REPORT INFORMATION
  Report Type: Report from Study
  Country: None (occurrence: US)
  Receive Date: 20200429
  Receipt Date: 20200429
  Transmission Date: 20200714
  Serious: Yes (Death, Hospitalization, Other)
  Sender: FDA-Public Use
  Company Number: US-ABBVIE-20K-163-3381727-00

PATIENT
  Sex: Male
  Weight: 68.1 kg

DRUGS (1)
  1. DUOPA [Suspect]
     Active Substance: CARBIDOPA\LEVODOPA
     Indication: PRODUCT USED FOR UNKNOWN INDICATION
     Dosage: STRENGTH (CMP): 4.63 MG/ML 20 MG/ML
     Route: 050
     Dates: start: 2017, end: 202004

REACTIONS (10)
  - Peritonitis [Fatal]
  - Intestinal perforation [Fatal]
  - Weight decreased [Fatal]
  - Gastric ulcer [Fatal]
  - Abdominal pain [Fatal]
  - Asthenia [Fatal]
  - Sepsis [Fatal]
  - Gastric haemorrhage [Fatal]
  - Unevaluable event [Fatal]
  - Gastrointestinal inflammation [Fatal]
